FAERS Safety Report 12058890 (Version 2)
Quarter: 2016Q1

REPORT INFORMATION
  Report Type: Report from Study
  Country: US (occurrence: US)
  Receive Date: 20160210
  Receipt Date: 20160308
  Transmission Date: 20160526
  Serious: Yes (Other)
  Sender: FDA-Public Use
  Company Number: US-AMGEN-USASL2016001585

PATIENT
  Age: 76 Year
  Sex: Female

DRUGS (4)
  1. ENSURE [Concomitant]
     Active Substance: AMINO ACIDS\DEXTROSE\ELECTROLYTES NOS\SOYBEAN OIL\VITAMINS
     Dosage: UNK
  2. NPLATE [Suspect]
     Active Substance: ROMIPLOSTIM
     Indication: IMMUNE THROMBOCYTOPENIC PURPURA
     Dosage: 75 UNK, UNK
     Route: 065
     Dates: start: 20101210
  3. HYDROCHLOROTHIAZIDE. [Concomitant]
     Active Substance: HYDROCHLOROTHIAZIDE
  4. KEFLEX [Concomitant]
     Active Substance: CEPHALEXIN
     Dosage: UNK

REACTIONS (18)
  - Logorrhoea [Unknown]
  - Nasopharyngitis [Recovered/Resolved]
  - Dyspepsia [Unknown]
  - Lymph node pain [Unknown]
  - Erythema [Unknown]
  - Tenderness [Not Recovered/Not Resolved]
  - Back pain [Unknown]
  - White blood cell count abnormal [Recovering/Resolving]
  - Decreased appetite [Unknown]
  - Pain [Unknown]
  - Platelet disorder [Unknown]
  - Cellulitis [Recovered/Resolved]
  - Nasal discharge discolouration [Not Recovered/Not Resolved]
  - Colon cancer [Unknown]
  - Asthenia [Unknown]
  - Blood pressure increased [Unknown]
  - Weight decreased [Unknown]
  - Pain in extremity [Unknown]

NARRATIVE: CASE EVENT DATE: 2015
